FAERS Safety Report 7760293-X (Version None)
Quarter: 2011Q3

REPORT INFORMATION
  Report Type: 
  Country: None (occurrence: None)
  Receive Date: 20110919
  Receipt Date: 20110912
  Transmission Date: 20111222
  Serious: Yes (Hospitalization)
  Sender: FDA-Public Use
  Company Number: US-PFIZER INC-2011215104

PATIENT
  Sex: Female

DRUGS (1)
  1. DEPO-ESTRADIOL [Suspect]
     Dosage: UNK

REACTIONS (5)
  - HEADACHE [None]
  - BRAIN OEDEMA [None]
  - HEART RATE INCREASED [None]
  - TREMOR [None]
  - DIZZINESS [None]
